FAERS Safety Report 10801942 (Version 1)
Quarter: 2015Q1

REPORT INFORMATION
  Report Type: Report from Study
  Country: US (occurrence: US)
  Receive Date: 20150217
  Receipt Date: 20150217
  Transmission Date: 20150721
  Serious: No
  Sender: FDA-Public Use
  Company Number: US-ABBVIE-14K-163-1266666-00

PATIENT
  Age: 25 Year
  Sex: Female
  Weight: 56.75 kg

DRUGS (4)
  1. COLESTID [Concomitant]
     Active Substance: COLESTIPOL HYDROCHLORIDE
     Indication: PRODUCT USED FOR UNKNOWN INDICATION
  2. HUMIRA [Suspect]
     Active Substance: ADALIMUMAB
     Indication: CROHN^S DISEASE
     Dates: start: 201203, end: 201304
  3. HUMIRA [Suspect]
     Active Substance: ADALIMUMAB
     Dates: start: 201309, end: 201311
  4. PROBIOTICS [Concomitant]
     Active Substance: PROBIOTICS NOS
     Indication: PRODUCT USED FOR UNKNOWN INDICATION

REACTIONS (9)
  - Muscle spasms [Not Recovered/Not Resolved]
  - Gilbert^s syndrome [Recovered/Resolved]
  - Diarrhoea [Not Recovered/Not Resolved]
  - Blood bilirubin increased [Recovered/Resolved]
  - Breast disorder [Not Recovered/Not Resolved]
  - Liver disorder [Recovered/Resolved]
  - Defaecation urgency [Not Recovered/Not Resolved]
  - Suppressed lactation [Not Recovered/Not Resolved]
  - Frequent bowel movements [Recovered/Resolved]

NARRATIVE: CASE EVENT DATE: 20130712
